FAERS Safety Report 5146249-4 (Version None)
Quarter: 2006Q4

REPORT INFORMATION
  Report Type: 
  Country: None (occurrence: None)
  Receive Date: 20061102
  Receipt Date: 20061024
  Transmission Date: 20070319
  Serious: Yes (Life-Threatening)
  Sender: FDA-Public Use
  Company Number: CHNY2006GB02925

PATIENT
  Sex: Female

DRUGS (9)
  1. NICOTINE [Suspect]
     Dosage: SEE IMAGE
  2. OMEPRAZOLE [Concomitant]
  3. ASPIRIN [Concomitant]
  4. ENALAPRIL MALEATE [Concomitant]
  5. SIMVASTATIN [Concomitant]
  6. NICORANDIL (NICORANDIL) [Concomitant]
  7. BISOPROLOL FUMARATE [Concomitant]
  8. CLOPIDOGREL [Concomitant]
  9. SLOZEM-DILATORY HR 120MG [Concomitant]

REACTIONS (4)
  - HYPERTENSION [None]
  - INTENTIONAL DRUG MISUSE [None]
  - MYOCARDIAL INFARCTION [None]
  - NICOTINE DEPENDENCE [None]
